FAERS Safety Report 24115374 (Version 1)
Quarter: 2024Q3

REPORT INFORMATION
  Report Type: Spontaneous
  Country: US (occurrence: US)
  Receive Date: 20240721
  Receipt Date: 20240721
  Transmission Date: 20241017
  Serious: No
  Sender: NOVO NORDISK
  Company Number: US-NOVOPROD-1219766

PATIENT
  Age: 56 Year
  Sex: Female

DRUGS (1)
  1. WEGOVY [Suspect]
     Active Substance: SEMAGLUTIDE
     Indication: Weight control
     Dosage: .25MG MG
     Route: 058

REACTIONS (5)
  - Illness [Unknown]
  - Eructation [Unknown]
  - Nausea [Unknown]
  - Injection site haemorrhage [Unknown]
  - Injection site streaking [Unknown]

NARRATIVE: CASE EVENT DATE: 20240429
